FAERS Safety Report 5481401-X (Version None)
Quarter: 2007Q4

REPORT INFORMATION
  Report Type: 
  Country: None (occurrence: None)
  Receive Date: 20071010
  Receipt Date: 20071005
  Transmission Date: 20080405
  Serious: Yes (Other)
  Sender: FDA-Public Use
  Company Number: A0625353A

PATIENT
  Age: 71 Year
  Sex: Female

DRUGS (2)
  1. COREG [Suspect]
     Dosage: 12.5MG TWICE PER DAY
     Route: 048
     Dates: start: 20060807
  2. COUMADIN [Concomitant]

REACTIONS (13)
  - ALOPECIA [None]
  - ANGER [None]
  - CHEST PAIN [None]
  - DIARRHOEA [None]
  - DISORIENTATION [None]
  - DIZZINESS [None]
  - FALL [None]
  - HEART RATE INCREASED [None]
  - PAIN IN EXTREMITY [None]
  - SKIN DISCOLOURATION [None]
  - SLEEP DISORDER [None]
  - VISION BLURRED [None]
  - VISUAL DISTURBANCE [None]
